FAERS Safety Report 15321423 (Version 1)
Quarter: 2018Q3

REPORT INFORMATION
  Report Type: Spontaneous
  Country: US (occurrence: US)
  Receive Date: 20180821
  Receipt Date: 20180821
  Transmission Date: 20181010
  Serious: Yes (Hospitalization)
  Sender: FDA-Public Use
  Company Number: None

PATIENT
  Age: 31 Year
  Sex: Female

DRUGS (8)
  1. LOVENOX [Concomitant]
     Active Substance: ENOXAPARIN SODIUM
  2. VOTRIENT [Suspect]
     Active Substance: PAZOPANIB HYDROCHLORIDE
     Indication: MALIGNANT CONNECTIVE TISSUE NEOPLASM
     Route: 048
     Dates: start: 20180509
  3. HYDROMORPHON [Concomitant]
     Active Substance: HYDROMORPHONE
  4. AFINITOR [Suspect]
     Active Substance: EVEROLIMUS
     Indication: MALIGNANT CONNECTIVE TISSUE NEOPLASM
     Route: 048
  5. LINEZOLID. [Concomitant]
     Active Substance: LINEZOLID
  6. KEPPRA [Concomitant]
     Active Substance: LEVETIRACETAM
  7. POTASSIUM [Concomitant]
     Active Substance: POTASSIUM
  8. DECADRON [Concomitant]
     Active Substance: DEXAMETHASONE

REACTIONS (2)
  - Hip arthroplasty [None]
  - Drug dose omission [None]

NARRATIVE: CASE EVENT DATE: 20180820
